FAERS Safety Report 5629875-5 (Version None)
Quarter: 2008Q1

REPORT INFORMATION
  Report Type: 
  Country: None (occurrence: None)
  Receive Date: 20080214
  Receipt Date: 20070910
  Transmission Date: 20080703
  Serious: Yes (Hospitalization)
  Sender: FDA-Public Use
  Company Number: T08-USA-00515-01

PATIENT
  Age: 36 Year
  Sex: Female

DRUGS (3)
  1. CERVIDIL [Suspect]
     Indication: LABOUR INDUCTION
     Route: 067
     Dates: start: 20070528, end: 20070528
  2. ALBUTEROL [Concomitant]
  3. ADVAIR DISKUS 100/50 [Concomitant]

REACTIONS (3)
  - CAESAREAN SECTION [None]
  - DRUG EXPOSURE DURING PREGNANCY [None]
  - FOETAL HEART RATE ABNORMAL [None]
